FAERS Safety Report 17892912 (Version 3)
Quarter: 2021Q2

REPORT INFORMATION
  Report Type: Spontaneous
  Country: US (occurrence: US)
  Receive Date: 20200613
  Receipt Date: 20210426
  Transmission Date: 20210717
  Serious: Yes (Death, Hospitalization, Other)
  Sender: FDA-Public Use
  Company Number: US-TEVA-2020-US-1247798

PATIENT
  Age: 65 Year
  Sex: Male
  Weight: 90.8 kg

DRUGS (11)
  1. METFORMIN HCL [Concomitant]
     Active Substance: METFORMIN HYDROCHLORIDE
     Indication: DIABETES MELLITUS
     Route: 065
     Dates: start: 20110623, end: 2016
  2. MULTIVITAMIN [Concomitant]
     Active Substance: VITAMINS
     Dosage: FOR AID TO HEALTH
     Route: 065
     Dates: start: 2013, end: 2019
  3. MULTIVITAMIN [Concomitant]
     Active Substance: VITAMINS
     Dosage: FOR AID TO HEALTH
     Route: 065
     Dates: start: 2013, end: 2019
  4. VITAMIN E [Concomitant]
     Active Substance: .ALPHA.-TOCOPHEROL
     Dosage: FOR AID TO HEALTH
     Route: 065
     Dates: start: 2013, end: 2019
  5. VALSARTAN W/HYDROCHLOROTHIAZIDE TEVA [Suspect]
     Active Substance: HYDROCHLOROTHIAZIDE\VALSARTAN
     Dosage: 320 ? 12.5 MG
     Route: 065
     Dates: start: 20141112, end: 20150210
  6. LABETALOL HCL [Concomitant]
     Active Substance: LABETALOL HYDROCHLORIDE
     Indication: HYPERTENSION
     Route: 065
     Dates: start: 20110712, end: 201301
  7. VALSARTAN W/HYDROCHLOROTHIAZIDE TEVA [Suspect]
     Active Substance: HYDROCHLOROTHIAZIDE\VALSARTAN
     Indication: HYPERTENSION
     Dosage: 320 ? 12.5 MG
     Route: 065
     Dates: start: 20121115, end: 20141221
  8. VALSARTAN/HYDROCHLOORTHIAZIDE ACETRIS [Suspect]
     Active Substance: HYDROCHLOROTHIAZIDE\VALSARTAN
     Indication: HYPERTENSION
     Dosage: 320?12.5 MG??VALSARTAN W/HYDROCHLOROTHIAZIDE ACETRIS
     Route: 065
     Dates: start: 20150205, end: 20150803
  9. VALSARTAN/HYDROCHLOORTHIAZIDE ACETRIS [Suspect]
     Active Substance: HYDROCHLOROTHIAZIDE\VALSARTAN
     Dosage: 320?12.5 MG
     Route: 065
     Dates: start: 20150820, end: 20160904
  10. LATANOPROST. [Concomitant]
     Active Substance: LATANOPROST
     Indication: INTRAOCULAR PRESSURE TEST ABNORMAL
     Route: 047
     Dates: start: 20120131, end: 201802
  11. VITAMIN E [Concomitant]
     Active Substance: .ALPHA.-TOCOPHEROL
     Dosage: FOR AID TO HEALTH
     Route: 065
     Dates: start: 2013, end: 2019

REACTIONS (6)
  - Bone cancer metastatic [Fatal]
  - Cholangiocarcinoma [Fatal]
  - Gallbladder cancer [Fatal]
  - Prostate cancer [Recovered/Resolved]
  - Intestinal obstruction [Unknown]
  - Hepatic cancer [Fatal]

NARRATIVE: CASE EVENT DATE: 2018
